FAERS Safety Report 5451878-4 (Version None)
Quarter: 2007Q3

REPORT INFORMATION
  Report Type: 
  Country: None (occurrence: None)
  Receive Date: 20070803
  Receipt Date: 20060827
  Transmission Date: 20080115
  Serious: Yes (Hospitalization)
  Sender: FDA-Public Use
  Company Number: 2006SP001228

PATIENT

DRUGS (1)
  1. INTERFERON ALFA-2B RECOMBINANT [Suspect]
     Indication: MALIGNANT MELANOMA

REACTIONS (1)
  - PANCREATITIS [None]
